FAERS Safety Report 24387993 (Version 4)
Quarter: 2024Q4

REPORT INFORMATION
  Report Type: Spontaneous
  Country: US (occurrence: US)
  Receive Date: 20241002
  Receipt Date: 20241107
  Transmission Date: 20250114
  Serious: No
  Sender: ROCHE
  Company Number: US-ROCHE-10000091383

PATIENT
  Age: 2 Year
  Sex: Male

DRUGS (3)
  1. XOLAIR [Suspect]
     Active Substance: OMALIZUMAB
     Indication: Food allergy
     Dosage: 150MG PFS WITH 75MG PFS
     Route: 050
     Dates: start: 20240624
  2. XOLAIR [Suspect]
     Active Substance: OMALIZUMAB
     Indication: Urticaria chronic
  3. ZYRTEC [Concomitant]
     Active Substance: CETIRIZINE HYDROCHLORIDE

REACTIONS (7)
  - Product dispensing issue [Unknown]
  - Device issue [Unknown]
  - Product quality issue [Unknown]
  - Product dose omission issue [Unknown]
  - Device issue [Unknown]
  - Product packaging difficult to open [Unknown]
  - No adverse event [Unknown]

NARRATIVE: CASE EVENT DATE: 20240923
